FAERS Safety Report 23142825 (Version 1)
Quarter: 2023Q4

REPORT INFORMATION
  Report Type: Spontaneous
  Country: US (occurrence: None)
  Receive Date: 20231102
  Receipt Date: 20231102
  Transmission Date: 20240110
  Serious: Yes (Other)
  Sender: FDA-Public Use
  Company Number: None

PATIENT
  Age: 34 Year
  Sex: Female
  Weight: 67.5 kg

DRUGS (1)
  1. XEOMIN [Suspect]
     Active Substance: INCOBOTULINUMTOXINA
     Indication: Skin wrinkling
     Dates: start: 20231020, end: 20231020

REACTIONS (7)
  - Pain [None]
  - Chills [None]
  - Dyspnoea [None]
  - Wheezing [None]
  - Cough [None]
  - Headache [None]
  - Oropharyngeal pain [None]

NARRATIVE: CASE EVENT DATE: 20231021
